FAERS Safety Report 5599618-2 (Version None)
Quarter: 2008Q1

REPORT INFORMATION
  Report Type: 
  Country: None (occurrence: None)
  Receive Date: 20080123
  Receipt Date: 20080116
  Transmission Date: 20080703
  Serious: Yes (Other)
  Sender: FDA-Public Use
  Company Number: KR-ELI_LILLY_AND_COMPANY-KR200801003811

PATIENT

DRUGS (1)
  1. OLANZAPINE [Suspect]

REACTIONS (1)
  - MYOCARDIAL INFARCTION [None]
